FAERS Safety Report 4559497-9 (Version None)
Quarter: 2005Q1

REPORT INFORMATION
  Report Type: 
  Country: None (occurrence: None)
  Receive Date: 20050119
  Receipt Date: 20050112
  Transmission Date: 20050727
  Serious: Yes (Hospitalization)
  Sender: FDA-Public Use
  Company Number: 2005010792

PATIENT
  Age: 84 Year
  Sex: Male

DRUGS (4)
  1. FRAGMIN [Suspect]
     Indication: THROMBOSIS PROPHYLAXIS
     Dosage: SUBCUTANEOUS
     Route: 058
     Dates: start: 20041005, end: 20041012
  2. ACETAMINOPHEN [Suspect]
     Indication: ILL-DEFINED DISORDER
     Dates: end: 20041016
  3. WARFARIN SODIUM [Concomitant]
  4. BICALUTAMIDE (BICALUTAMIDE) [Suspect]
     Indication: NEOPLASM PROSTATE
     Dosage: 50 MG (50 MG, QD), ORAL
     Route: 048
     Dates: start: 20040929, end: 20041012

REACTIONS (9)
  - ALPHA-1 ANTI-TRYPSIN DECREASED [None]
  - BLOOD ALBUMIN DECREASED [None]
  - COAGULOPATHY [None]
  - FATIGUE [None]
  - GENERAL PHYSICAL HEALTH DETERIORATION [None]
  - HEPATIC FAILURE [None]
  - INFLAMMATION [None]
  - JAUNDICE [None]
  - RENAL FAILURE ACUTE [None]
